FAERS Safety Report 18717272 (Version 1)
Quarter: 2021Q1

REPORT INFORMATION
  Report Type: Spontaneous
  Country: CN (occurrence: CN)
  Receive Date: 20210108
  Receipt Date: 20210108
  Transmission Date: 20210419
  Serious: Yes (Other)
  Sender: FDA-Public Use
  Company Number: CN-PFIZER INC-2021006052

PATIENT
  Age: 3 Year
  Sex: Female
  Weight: 14.3 kg

DRUGS (1)
  1. AZITHROMYCIN ANHYDROUS. [Suspect]
     Active Substance: AZITHROMYCIN ANHYDROUS
     Indication: PNEUMONIA
     Dosage: 0.14 G, 1X/DAY
     Route: 048
     Dates: start: 20201222, end: 20201222

REACTIONS (4)
  - Heart rate increased [Unknown]
  - Diarrhoea [Recovering/Resolving]
  - Enterovirus infection [Unknown]
  - Vomiting [Recovering/Resolving]

NARRATIVE: CASE EVENT DATE: 20201222
